FAERS Safety Report 4993931-5 (Version None)
Quarter: 2006Q2

REPORT INFORMATION
  Report Type: 
  Country: None (occurrence: None)
  Receive Date: 20060505
  Receipt Date: 20060209
  Transmission Date: 20061013
  Serious: Yes (Hospitalization)
  Sender: FDA-Public Use
  Company Number: US-GLAXOSMITHKLINE-A0593054A

PATIENT
  Age: 75 Year

DRUGS (8)
  1. ADVAIR DISKUS 100/50 [Suspect]
     Indication: ASTHMA
     Dosage: 1PUFF TWICE PER DAY
     Route: 055
  2. BLOOD PRESSURE MEDICATION [Concomitant]
  3. COMBIVENT [Concomitant]
  4. ENALAPRIL MALEATE [Concomitant]
     Dosage: 10MG TWICE PER DAY
  5. ASPIRIN [Concomitant]
  6. INDURA [Concomitant]
     Dosage: 60MG PER DAY
  7. LASIX [Concomitant]
     Dosage: 20MG PER DAY
  8. CONCURRENT MEDICATIONS [Concomitant]

REACTIONS (3)
  - FATIGUE [None]
  - PHARMACEUTICAL PRODUCT COMPLAINT [None]
  - WHEEZING [None]
